FAERS Safety Report 19441566 (Version 3)
Quarter: 2021Q3

REPORT INFORMATION
  Report Type: Other
  Country: CL (occurrence: CL)
  Receive Date: 20210621
  Receipt Date: 20210730
  Transmission Date: 20211014
  Serious: Yes (Disabling, Other)
  Sender: FDA-Public Use
  Company Number: CL-ROCHE-2847650

PATIENT
  Age: 58 Year
  Sex: Female

DRUGS (5)
  1. HERCEPTIN [Suspect]
     Active Substance: TRASTUZUMAB
     Indication: BREAST CANCER
     Route: 058
     Dates: start: 20200819
  2. CARVEDILOL. [Concomitant]
     Active Substance: CARVEDILOL
  3. ENALAPRIL [Concomitant]
     Active Substance: ENALAPRIL
     Indication: HYPERTENSION
  4. ELCAL D [Concomitant]
     Active Substance: CALCIUM CARBONATE\CHOLECALCIFEROL
     Dosage: DOSE: CALCIUM 1250 MG AND VITAMIN D 400 IU. FREQUENCY WAS NOT REPORTED
     Route: 048
  5. METFORMIN [Concomitant]
     Active Substance: METFORMIN HYDROCHLORIDE
     Indication: DIABETES MELLITUS

REACTIONS (10)
  - Palpitations [Not Recovered/Not Resolved]
  - Cardiotoxicity [Unknown]
  - Systolic dysfunction [Unknown]
  - Procedural pain [Unknown]
  - Arthralgia [Not Recovered/Not Resolved]
  - Arthralgia [Unknown]
  - Hypoacusis [Unknown]
  - Ejection fraction decreased [Unknown]
  - Pain in extremity [Not Recovered/Not Resolved]
  - Pain [Unknown]
